FAERS Safety Report 6271717-1 (Version None)
Quarter: 2009Q3

REPORT INFORMATION
  Report Type: 
  Country: None (occurrence: None)
  Receive Date: 20090717
  Receipt Date: 20070705
  Transmission Date: 20100115
  Serious: Yes (Other)
  Sender: FDA-Public Use
  Company Number: US-ASTRAZENECA-2006UW26592

PATIENT
  Age: 49 Year
  Sex: Female
  Weight: 81.6 kg

DRUGS (20)
  1. SEROQUEL [Suspect]
     Indication: MENTAL DISORDER
     Dosage: 200 MG, HALF TABLET IN THE MORNING AND 2 AT BEDTIME.
     Route: 048
     Dates: start: 20011029
  2. CLOZARIL [Concomitant]
  3. GEODON [Concomitant]
  4. THORAZINE [Concomitant]
  5. DESYREL [Concomitant]
     Dates: start: 20011029
  6. TYLOX [Concomitant]
     Dates: start: 20011029
  7. ZOLOFT [Concomitant]
     Dates: start: 20011029
  8. HUMIBID [Concomitant]
     Dates: start: 20011029
  9. ATROVENT [Concomitant]
     Dates: start: 20011029
  10. ALBUTEROL [Concomitant]
     Dates: start: 20011029
  11. PHENAZOPYRIDINE HCL TAB [Concomitant]
     Indication: BLADDER SPASM
     Dates: start: 20040615
  12. CIPRO [Concomitant]
     Dates: start: 20040615
  13. DIFLUCAN [Concomitant]
     Indication: VAGINAL INFECTION
     Dosage: 100-200 MG
     Dates: start: 20040615
  14. LEXAPRO [Concomitant]
     Route: 048
     Dates: start: 20051215
  15. XANAX [Concomitant]
     Route: 048
     Dates: start: 20051215
  16. MOTRIN [Concomitant]
     Route: 048
     Dates: start: 20051215
  17. GLUCOTROL [Concomitant]
     Route: 048
     Dates: start: 20051215
  18. LORAZEPAM [Concomitant]
     Dosage: STRENGTH 2 MG/ML, 1 ML
     Dates: start: 20020414
  19. AVANDAMET [Concomitant]
     Dosage: STRENGTH 4/1000, 2/500 MG
     Dates: start: 20051215
  20. HYDROXYZINE PAMOA [Concomitant]
     Dates: start: 20020414

REACTIONS (4)
  - DIABETES MELLITUS [None]
  - DIABETIC COMA [None]
  - DIABETIC NEUROPATHY [None]
  - TYPE 2 DIABETES MELLITUS [None]
